FAERS Safety Report 6103465-2 (Version None)
Quarter: 2009Q1

REPORT INFORMATION
  Report Type: 
  Country: None (occurrence: None)
  Receive Date: 20090305
  Receipt Date: 20090302
  Transmission Date: 20090719
  Serious: Yes (Death)
  Sender: FDA-Public Use
  Company Number: PHHY2008MX15955

PATIENT
  Sex: Male

DRUGS (1)
  1. STALEVO 100 [Suspect]
     Indication: PARKINSON'S DISEASE
     Dosage: 150/37.5/200 MG,1 TAB/DAY
     Route: 048
     Dates: start: 20071101, end: 20080720

REACTIONS (4)
  - DYSPHAGIA [None]
  - HEPATIC NEOPLASM [None]
  - JAUNDICE [None]
  - PANCREATIC CARCINOMA [None]
